FAERS Safety Report 4435612-2 (Version None)
Quarter: 2004Q3

REPORT INFORMATION
  Report Type: 
  Country: None (occurrence: None)
  Receive Date: 20040726
  Receipt Date: 20040427
  Transmission Date: 20050211
  Serious: No
  Sender: FDA-Public Use
  Company Number: USA040566577

PATIENT
  Age: 78 Year
  Sex: Female

DRUGS (1)
  1. FORTEO [Suspect]
     Indication: OSTEOPOROSIS
     Dosage: 20 UG DAY

REACTIONS (6)
  - CHEST DISCOMFORT [None]
  - DIARRHOEA [None]
  - DIASTOLIC HYPERTENSION [None]
  - FAECAL INCONTINENCE [None]
  - HEADACHE [None]
  - TACHYCARDIA [None]
